FAERS Safety Report 7450375-4 (Version None)
Quarter: 2011Q2

REPORT INFORMATION
  Report Type: 
  Country: None (occurrence: None)
  Receive Date: 20110502
  Receipt Date: 20110426
  Transmission Date: 20111010
  Serious: Yes (Death, Hospitalization)
  Sender: FDA-Public Use
  Company Number: AT-JNJFOC-20110311199

PATIENT
  Sex: Male
  Weight: 73 kg

DRUGS (8)
  1. FOLSAN [Concomitant]
     Route: 048
  2. GOLIMUMAB [Suspect]
     Indication: RHEUMATOID ARTHRITIS
     Route: 058
  3. VOLTAREN [Concomitant]
     Route: 048
  4. DUSODRIL [Concomitant]
     Route: 048
  5. GOLIMUMAB [Suspect]
     Route: 058
  6. ASPIRIN [Concomitant]
     Route: 048
  7. METHOTREXATE [Concomitant]
     Route: 030
  8. AGOPTON [Concomitant]
     Route: 048

REACTIONS (1)
  - PNEUMONIA [None]
